FAERS Safety Report 4274946-1 (Version None)
Quarter: 2004Q1

REPORT INFORMATION
  Report Type: 
  Country: None (occurrence: None)
  Receive Date: 20040120
  Receipt Date: 20040112
  Transmission Date: 20041129
  Serious: Yes (Death)
  Sender: FDA-Public Use
  Company Number: C2003-3111.01

PATIENT
  Age: 72 Year
  Sex: Male

DRUGS (6)
  1. CLOZAPINE [Suspect]
     Indication: HALLUCINATION
     Dosage: 75 MG, BID, ORAL
     Route: 048
     Dates: start: 20000501, end: 20031111
  2. CARBIDOPA/LEVODOPA [Concomitant]
  3. SERTRALINE HCL [Concomitant]
  4. GABAPENTIN [Concomitant]
  5. TRIMETHOBENZAMIDE [Concomitant]
  6. APOMORPHINE [Concomitant]

REACTIONS (1)
  - CARDIAC ARREST [None]
